FAERS Safety Report 25759340 (Version 2)
Quarter: 2025Q4

REPORT INFORMATION
  Report Type: Spontaneous
  Country: EU (occurrence: EU)
  Receive Date: 20250904
  Receipt Date: 20251104
  Transmission Date: 20260117
  Serious: Yes (Death, Other)
  Sender: BIOVITRUM
  Company Number: EU-BIOVITRUM-2025-AT-008648

PATIENT
  Sex: Male
  Weight: 5.5 kg

DRUGS (3)
  1. ANAKINRA [Suspect]
     Active Substance: ANAKINRA
     Indication: Congenital ectodermal dysplasia
     Dosage: INITIALLY RECEIVING 2 MG/KG/DAY
     Route: 058
     Dates: start: 20250508
  2. ANAKINRA [Suspect]
     Active Substance: ANAKINRA
     Indication: Immunodeficiency
     Dosage: 20 MG DAILY (EQUIVALENT TO JUST OVER 3 MG/KG/ DAY)
     Route: 058
     Dates: start: 20250602
  3. ANAKINRA [Suspect]
     Active Substance: ANAKINRA
     Dosage: INCREASED TO 5 MG/KG/DAY
     Route: 058
     Dates: start: 20250708

REACTIONS (4)
  - Off label use [Recovered/Resolved]
  - Multiple organ dysfunction syndrome [Fatal]
  - Pericardial effusion [Unknown]
  - Gastrointestinal haemorrhage [Unknown]

NARRATIVE: CASE EVENT DATE: 20250508
